FAERS Safety Report 19747163 (Version 2)
Quarter: 2021Q4

REPORT INFORMATION
  Report Type: Other
  Country: DE (occurrence: DE)
  Receive Date: 20210825
  Receipt Date: 20211011
  Transmission Date: 20220304
  Serious: Yes (Other)
  Sender: FDA-Public Use
  Company Number: DE-DEXPHARM-20211398

PATIENT
  Age: 29 Year
  Sex: Female

DRUGS (12)
  1. CYCLOSPORINE [Suspect]
     Active Substance: CYCLOSPORINE
  2. DEXAMETHASONE [Suspect]
     Active Substance: DEXAMETHASONE
  3. FLUDARABINE [Suspect]
     Active Substance: FLUDARABINE PHOSPHATE
  4. CYCLOPHOSPHAMIDE [Suspect]
     Active Substance: CYCLOPHOSPHAMIDE
  5. TREOSULFAN [Suspect]
     Active Substance: TREOSULFAN
  6. MYCOPHENOLATE MOFETIL [Suspect]
     Active Substance: MYCOPHENOLATE MOFETIL
  7. ETOPOSIDE [Suspect]
     Active Substance: ETOPOSIDE
  8. CLOFAZIMINE [Suspect]
     Active Substance: CLOFAZIMINE
  9. ETHAMBUTOL [Suspect]
     Active Substance: ETHAMBUTOL HYDROCHLORIDE
  10. AMIKACIN [Suspect]
     Active Substance: AMIKACIN
  11. AZITHROMYCIN ANHYDROUS [Suspect]
     Active Substance: AZITHROMYCIN ANHYDROUS
  12. RIFAMPIN [Suspect]
     Active Substance: RIFAMPIN

REACTIONS (1)
  - Hepatotoxicity [Unknown]
